FAERS Safety Report 13554903 (Version 1)
Quarter: 2017Q2

REPORT INFORMATION
  Report Type: Spontaneous
  Country: US (occurrence: US)
  Receive Date: 20170516
  Receipt Date: 20170516
  Transmission Date: 20170830
  Serious: Yes (Hospitalization)
  Sender: FDA-Public Use
  Company Number: None

PATIENT
  Age: 58 Year
  Sex: Male
  Weight: 92.7 kg

DRUGS (1)
  1. LEVETIRACETAM. [Suspect]
     Active Substance: LEVETIRACETAM
     Indication: SEIZURE
     Route: 048
     Dates: start: 20160614, end: 20160615

REACTIONS (4)
  - Inappropriate affect [None]
  - Disinhibition [None]
  - Confusional state [None]
  - Hallucinations, mixed [None]

NARRATIVE: CASE EVENT DATE: 20160615
